FAERS Safety Report 16833255 (Version 1)
Quarter: 2019Q3

REPORT INFORMATION
  Report Type: Spontaneous
  Country: US (occurrence: US)
  Receive Date: 20190920
  Receipt Date: 20190920
  Transmission Date: 20191005
  Serious: Yes (Other)
  Sender: FDA-Public Use
  Company Number: US-ROCHE-2405721

PATIENT
  Age: 65 Year
  Sex: Male

DRUGS (3)
  1. RITUXAN [Suspect]
     Active Substance: RITUXIMAB
     Indication: PRODUCT USED FOR UNKNOWN INDICATION
     Route: 065
  2. IMBRUVICA [Suspect]
     Active Substance: IBRUTINIB
     Indication: CHRONIC LYMPHOCYTIC LEUKAEMIA
     Dosage: ONGOING: YES
     Route: 048
     Dates: start: 20190516
  3. IMBRUVICA [Suspect]
     Active Substance: IBRUTINIB
     Dosage: ONGOING: YES
     Route: 048
     Dates: end: 20190808

REACTIONS (7)
  - Platelet count increased [Unknown]
  - Tooth loss [Recovering/Resolving]
  - Nausea [Not Recovered/Not Resolved]
  - Wisdom teeth removal [Unknown]
  - Suicidal ideation [Recovering/Resolving]
  - Muscular weakness [Recovering/Resolving]
  - Influenza like illness [Recovering/Resolving]

NARRATIVE: CASE EVENT DATE: 20190530
